FAERS Safety Report 6062431-6 (Version None)
Quarter: 2009Q1

REPORT INFORMATION
  Report Type: 
  Country: None (occurrence: None)
  Receive Date: 20090203
  Receipt Date: 20090126
  Transmission Date: 20090719
  Serious: Yes (Hospitalization)
  Sender: FDA-Public Use
  Company Number: US-BAYER-200840920NA

PATIENT
  Age: 34 Year
  Sex: Female
  Weight: 73 kg

DRUGS (1)
  1. MIRENA [Suspect]
     Indication: CONTRACEPTION
     Route: 015
     Dates: start: 20050912, end: 20081215

REACTIONS (2)
  - ABDOMINAL PAIN [None]
  - ECTOPIC PREGNANCY WITH INTRAUTERINE DEVICE [None]
